FAERS Safety Report 7478454-6 (Version None)
Quarter: 2011Q2

REPORT INFORMATION
  Report Type: 
  Country: None (occurrence: None)
  Receive Date: 20110513
  Receipt Date: 20100617
  Transmission Date: 20111010
  Serious: No
  Sender: FDA-Public Use
  Company Number: US-PFIZER INC-2010076379

PATIENT
  Age: 10 Year
  Sex: Male
  Weight: 43.9 kg

DRUGS (2)
  1. CELEBREX [Suspect]
     Indication: ARTHRITIS INFECTIVE
     Dosage: 200 MG, 2X/DAY
     Dates: start: 20100101
  2. PEPCID [Concomitant]

REACTIONS (1)
  - DYSPEPSIA [None]
